FAERS Safety Report 4278066-1 (Version None)
Quarter: 2004Q1

REPORT INFORMATION
  Report Type: 
  Country: None (occurrence: None)
  Receive Date: 20040121
  Receipt Date: 19991205
  Transmission Date: 20041129
  Serious: Yes (Death)
  Sender: FDA-Public Use
  Company Number: 7178

PATIENT
  Age: 41 Year
  Sex: Male

DRUGS (1)
  1. METHOTREXATE [Suspect]
     Indication: PSORIASIS
     Dosage: 43 MG
     Dates: start: 19830101

REACTIONS (16)
  - AORTIC VALVE DISEASE [None]
  - AORTIC VALVE REPLACEMENT [None]
  - BLINDNESS UNILATERAL [None]
  - CARDIAC VALVE VEGETATION [None]
  - CHEST PAIN [None]
  - CHILLS [None]
  - DIARRHOEA [None]
  - DYSPNOEA [None]
  - ENDOCARDITIS BACTERIAL [None]
  - MALAISE [None]
  - PARAESTHESIA [None]
  - PRODUCTIVE COUGH [None]
  - PYREXIA [None]
  - VISION BLURRED [None]
  - VOMITING [None]
  - WEIGHT DECREASED [None]
